FAERS Safety Report 15240525 (Version 5)
Quarter: 2019Q3

REPORT INFORMATION
  Report Type: Report from Study
  Country: US (occurrence: US)
  Receive Date: 20180804
  Receipt Date: 20190816
  Transmission Date: 20191004
  Serious: No
  Sender: FDA-Public Use
  Company Number: PHEH2018US031888

PATIENT
  Age: 69 Year
  Sex: Male

DRUGS (2)
  1. GILENYA [Suspect]
     Active Substance: FINGOLIMOD HYDROCHLORIDE
     Indication: MULTIPLE SCLEROSIS
     Dosage: 0.5 MG, QD
     Route: 048
     Dates: start: 20180212
  2. GILENYA [Suspect]
     Active Substance: FINGOLIMOD HYDROCHLORIDE
     Dosage: 0.5 MG, QD
     Route: 048

REACTIONS (10)
  - Peripheral coldness [Unknown]
  - Cough [Recovered/Resolved]
  - Dyspnoea [Unknown]
  - Chills [Recovering/Resolving]
  - Insomnia [Unknown]
  - Nasal congestion [Not Recovered/Not Resolved]
  - Vision blurred [Recovering/Resolving]
  - Pain [Recovered/Resolved]
  - Productive cough [Not Recovered/Not Resolved]
  - Hallucination, visual [Unknown]

NARRATIVE: CASE EVENT DATE: 20180212
